FAERS Safety Report 8803209 (Version 2)
Quarter: 2015Q1

REPORT INFORMATION
  Report Type: Report from Study
  Country: US (occurrence: US)
  Receive Date: 20120924
  Receipt Date: 20150302
  Transmission Date: 20150721
  Serious: Yes (Death, Other)
  Sender: FDA-Public Use
  Company Number: US-ROCHE-1103601

PATIENT
  Sex: Male
  Weight: 103 kg

DRUGS (6)
  1. AVASTIN [Suspect]
     Active Substance: BEVACIZUMAB
     Indication: RENAL CANCER
     Route: 065
  2. COMPAZINE [Concomitant]
     Active Substance: PROCHLORPERAZINE MALEATE
     Route: 065
  3. ANZEMET [Concomitant]
     Active Substance: DOLASETRON MESYLATE
     Route: 065
  4. DECADRON [Concomitant]
     Active Substance: DEXAMETHASONE
     Route: 065
  5. 5-FLUOROURACIL [Concomitant]
     Active Substance: FLUOROURACIL
     Route: 040
  6. NEXAVAR [Concomitant]
     Active Substance: SORAFENIB
     Route: 065

REACTIONS (8)
  - Stomatitis [Unknown]
  - Feeling abnormal [Unknown]
  - Off label use [Unknown]
  - Death [Fatal]
  - Dyspnoea [Unknown]
  - Hypertension [Unknown]
  - No therapeutic response [Unknown]
  - Abdominal pain upper [Unknown]
